FAERS Safety Report 16371054 (Version 1)
Quarter: 2019Q2

REPORT INFORMATION
  Report Type: Report from Study
  Country: None (occurrence: ES)
  Receive Date: 20190530
  Receipt Date: 20190530
  Transmission Date: 20190711
  Serious: Yes (Hospitalization)
  Sender: FDA-Public Use
  Company Number: ES-ABBVIE-19S-144-2800987-00

PATIENT
  Age: 76 Year
  Sex: Female

DRUGS (1)
  1. DUODOPA [Suspect]
     Active Substance: CARBIDOPA\LEVODOPA
     Indication: PARKINSON^S DISEASE
     Route: 050
     Dates: start: 20160614

REACTIONS (4)
  - General physical health deterioration [Unknown]
  - Aspiration [Recovered/Resolved with Sequelae]
  - Vomiting [Unknown]
  - Productive cough [Unknown]

NARRATIVE: CASE EVENT DATE: 20190420
